FAERS Safety Report 14184535 (Version 1)
Quarter: 2017Q4

REPORT INFORMATION
  Report Type: Not Available
  Country: None (occurrence: US)
  Receive Date: 20171113
  Receipt Date: 20171113
  Transmission Date: 20180321
  Serious: No
  Sender: FDA-Public Use
  Company Number: US-AKORN-47520

PATIENT
  Sex: Female

DRUGS (1)
  1. DORZOLAMIDE HCI TIMOLOL MALEATE OPTHALMIC SOLUTION [Suspect]
     Active Substance: DORZOLAMIDE HYDROCHLORIDE\TIMOLOL MALEATE

REACTIONS (2)
  - Arthralgia [Unknown]
  - Myalgia [Unknown]
